FAERS Safety Report 7379207-X (Version None)
Quarter: 2011Q1

REPORT INFORMATION
  Report Type: 
  Country: None (occurrence: None)
  Receive Date: 20110328
  Receipt Date: 20110201
  Transmission Date: 20110831
  Serious: Yes (Life-Threatening)
  Sender: FDA-Public Use
  Company Number: JP-AMGEN-JPNCT2011006395

PATIENT
  Age: 49 Year
  Sex: Male
  Weight: 67 kg

DRUGS (9)
  1. IRINOTECAN HYDROCHLORIDE [Concomitant]
     Indication: COLORECTAL CANCER
     Dosage: 280 MG, Q2WK
     Route: 041
     Dates: start: 20110112, end: 20110112
  2. KYTRIL [Concomitant]
     Dosage: UNK
     Route: 042
  3. IRINOTECAN HYDROCHLORIDE [Concomitant]
     Route: 041
     Dates: start: 20110112, end: 20110112
  4. DECADRON PHOSPHATE [Concomitant]
     Dosage: UNK
     Route: 042
  5. PANITUMUMAB [Suspect]
     Indication: COLORECTAL CANCER
     Dosage: 430 MG, Q2WK
     Route: 041
     Dates: start: 20110112, end: 20110112
  6. ISOVORIN                           /00566702/ [Concomitant]
     Indication: COLORECTAL CANCER
     Dosage: 200 MG, UNK
     Route: 041
     Dates: start: 20110112, end: 20110113
  7. SOLU-MEDROL [Concomitant]
     Dosage: UNK
     Route: 042
  8. FLUOROURACIL [Concomitant]
     Indication: COLORECTAL CANCER
     Dosage: 750 MG, UNK
     Route: 041
     Dates: start: 20110112, end: 20110114
  9. FLUOROURACIL [Concomitant]
     Route: 041
     Dates: start: 20110112

REACTIONS (1)
  - INTERSTITIAL LUNG DISEASE [None]
